FAERS Safety Report 20637357 (Version 1)
Quarter: 2022Q1

REPORT INFORMATION
  Report Type: Spontaneous
  Country: IT (occurrence: IT)
  Receive Date: 20220325
  Receipt Date: 20220325
  Transmission Date: 20220423
  Serious: Yes (Other)
  Sender: FDA-Public Use
  Company Number: None

PATIENT
  Age: 49 Year
  Sex: Male
  Weight: 80 kg

DRUGS (1)
  1. CYCLOSPORINE [Suspect]
     Active Substance: CYCLOSPORINE
     Indication: Psoriasis
     Dosage: 300MG,STRENGTH: 100 MG,FREQUENCY TIME 1DAYS, DURATION 112DAYS
     Route: 048
     Dates: start: 20210720, end: 20211109

REACTIONS (3)
  - Psoriasis [Unknown]
  - Therapy non-responder [Unknown]
  - Eczema [Unknown]

NARRATIVE: CASE EVENT DATE: 20211109
